FAERS Safety Report 4855611-6 (Version None)
Quarter: 2005Q4

REPORT INFORMATION
  Report Type: 
  Country: None (occurrence: None)
  Receive Date: 20051214
  Receipt Date: 20051128
  Transmission Date: 20060501
  Serious: Yes (Death)
  Sender: FDA-Public Use
  Company Number: 12935

PATIENT
  Age: 74 Year
  Sex: Female

DRUGS (8)
  1. PAMIDRONIC ACID [Suspect]
  2. HUMIRA [Suspect]
     Indication: RHEUMATOID ARTHRITIS
     Dosage: 40 MG FORTNIGHTLY SC
     Route: 058
     Dates: start: 20040715, end: 20041015
  3. PREDNISOLONE [Concomitant]
  4. ASPIRIN [Concomitant]
  5. ATENOLOL [Concomitant]
  6. ACETAMINOPHEN W/ CODEINE [Concomitant]
  7. TEMAZEPAM [Concomitant]
  8. LANSOPRAZOLE [Concomitant]

REACTIONS (2)
  - INTESTINAL ISCHAEMIA [None]
  - PELVIC ABSCESS [None]
